FAERS Safety Report 4503966-4 (Version None)
Quarter: 2004Q3

REPORT INFORMATION
  Report Type: 
  Country: None (occurrence: None)
  Receive Date: 20040927
  Receipt Date: 20040817
  Transmission Date: 20050211
  Serious: No
  Sender: FDA-Public Use
  Company Number: USA040875756

PATIENT
  Age: 18 Year
  Sex: Female
  Weight: 64 kg

DRUGS (2)
  1. STRATTERA [Suspect]
     Dosage: 80 MG DAY
     Route: 047
     Dates: start: 20040601
  2. DEXEDRINE [Concomitant]

REACTIONS (6)
  - DEPRESSED MOOD [None]
  - DEPRESSION [None]
  - FATIGUE [None]
  - PHARYNGOLARYNGEAL PAIN [None]
  - VISION BLURRED [None]
  - WEIGHT INCREASED [None]
